FAERS Safety Report 23416168 (Version 1)
Quarter: 2024Q1

REPORT INFORMATION
  Report Type: Spontaneous
  Country: US (occurrence: US)
  Receive Date: 20240118
  Receipt Date: 20240118
  Transmission Date: 20240409
  Serious: No
  Sender: FDA-Public Use
  Company Number: US-Merck Healthcare KGaA-2024002341

PATIENT
  Age: 53 Year
  Sex: Male

DRUGS (1)
  1. MAVENCLAD [Suspect]
     Active Substance: CLADRIBINE
     Indication: Multiple sclerosis
     Dosage: FIRST CYCLE THERAPY: 20 MG FOR 1 TO 3 DAYS AND 10 MG ON DAY 4 TO 5
     Route: 048
     Dates: start: 20230101

REACTIONS (1)
  - Nausea [Unknown]
